FAERS Safety Report 18664637 (Version 3)
Quarter: 2021Q1

REPORT INFORMATION
  Report Type: Spontaneous
  Country: GB (occurrence: GB)
  Receive Date: 20201225
  Receipt Date: 20210225
  Transmission Date: 20210419
  Serious: Yes (Other)
  Sender: FDA-Public Use
  Company Number: GB-BIOVITRUM-2020GB7897

PATIENT
  Age: 62 Year
  Sex: Female

DRUGS (52)
  1. PARACETAMOL [Concomitant]
     Active Substance: ACETAMINOPHEN
     Dates: start: 2018
  2. COCODAMOL [Concomitant]
     Active Substance: ACETAMINOPHEN\CODEINE PHOSPHATE
     Dosage: AS NEEDED
     Dates: start: 2014
  3. LANSOPRAZOLE. [Concomitant]
     Active Substance: LANSOPRAZOLE
     Dates: start: 2017
  4. AVAMYS [Concomitant]
     Active Substance: FLUTICASONE FUROATE
     Dates: start: 2014
  5. FELODIPINE. [Concomitant]
     Active Substance: FELODIPINE
     Dates: start: 2016
  6. ORFADIN [Suspect]
     Active Substance: NITISINONE
     Indication: ALKAPTONURIA
     Dates: start: 2012
  7. ADCAL D3 [Concomitant]
     Active Substance: CALCIUM CARBONATE\CHOLECALCIFEROL
     Dates: start: 2017
  8. IBUPROFEN. [Concomitant]
     Active Substance: IBUPROFEN
     Dates: start: 2013
  9. LANSOPRAZOLE. [Concomitant]
     Active Substance: LANSOPRAZOLE
     Dates: start: 2018
  10. TYR COOLER [Concomitant]
     Dates: start: 2019
  11. ADCAL D3 [Concomitant]
     Active Substance: CALCIUM CARBONATE\CHOLECALCIFEROL
     Dates: start: 2020
  12. PARACETAMOL [Concomitant]
     Active Substance: ACETAMINOPHEN
     Dates: start: 2013
  13. COCODAMOL [Concomitant]
     Active Substance: ACETAMINOPHEN\CODEINE PHOSPHATE
     Dates: start: 2013
  14. LANSOPRAZOLE. [Concomitant]
     Active Substance: LANSOPRAZOLE
     Dates: start: 2019
  15. FISH OIL [Concomitant]
     Active Substance: FISH OIL
     Dosage: 1200
     Dates: start: 2014
  16. TERIPARATIDE [Concomitant]
     Active Substance: TERIPARATIDE
     Dates: start: 2015
  17. MULTI VITAMIN [Concomitant]
     Active Substance: VITAMINS
     Dates: start: 2015
  18. AMITRIPTYLINE [Concomitant]
     Active Substance: AMITRIPTYLINE
     Dates: start: 2017
  19. ADCAL D3 [Concomitant]
     Active Substance: CALCIUM CARBONATE\CHOLECALCIFEROL
     Dates: start: 2014
  20. IBUPROFEN. [Concomitant]
     Active Substance: IBUPROFEN
     Dates: start: 2018
  21. PARACETAMOL [Concomitant]
     Active Substance: ACETAMINOPHEN
     Dates: start: 2017
  22. PARACETAMOL [Concomitant]
     Active Substance: ACETAMINOPHEN
     Dates: start: 2019
  23. LANSOPRAZOLE. [Concomitant]
     Active Substance: LANSOPRAZOLE
     Dates: start: 2020
  24. GLUCOSAMINE WITH CHONDROITIN [Concomitant]
     Dates: start: 2015
  25. FELODIPINE. [Concomitant]
     Active Substance: FELODIPINE
     Dates: start: 2018
  26. IBUPROFEN. [Concomitant]
     Active Substance: IBUPROFEN
     Dates: start: 2014
  27. IBUPROFEN. [Concomitant]
     Active Substance: IBUPROFEN
     Dates: start: 2017
  28. FISH OIL [Concomitant]
     Active Substance: FISH OIL
     Dates: start: 2015
  29. FELODIPINE. [Concomitant]
     Active Substance: FELODIPINE
     Dates: start: 2019
  30. DENOSUMAB [Concomitant]
     Active Substance: DENOSUMAB
     Dates: start: 2020
  31. ALENDRONIC ACID [Concomitant]
     Active Substance: ALENDRONIC ACID
     Dates: start: 2012
  32. ADCAL D3 [Concomitant]
     Active Substance: CALCIUM CARBONATE\CHOLECALCIFEROL
     Dates: start: 2015
  33. ADCAL D3 [Concomitant]
     Active Substance: CALCIUM CARBONATE\CHOLECALCIFEROL
     Dates: start: 2016
  34. IBUPROFEN. [Concomitant]
     Active Substance: IBUPROFEN
     Dates: start: 2015
  35. IBUPROFEN. [Concomitant]
     Active Substance: IBUPROFEN
     Dates: start: 2016
  36. IBUPROFEN. [Concomitant]
     Active Substance: IBUPROFEN
     Dates: start: 2019
  37. LANSOPRAZOLE. [Concomitant]
     Active Substance: LANSOPRAZOLE
     Dates: start: 2016
  38. GLUCOSAMINE WITH CHONDROITIN [Concomitant]
     Dates: start: 2016
  39. TERIPARATIDE [Concomitant]
     Active Substance: TERIPARATIDE
     Dates: start: 2016
  40. ADCAL D3 [Concomitant]
     Active Substance: CALCIUM CARBONATE\CHOLECALCIFEROL
     Dates: start: 2018
  41. PARACETAMOL [Concomitant]
     Active Substance: ACETAMINOPHEN
     Dates: start: 2014
  42. LANSOPRAZOLE. [Concomitant]
     Active Substance: LANSOPRAZOLE
     Dates: start: 2014
  43. FISH OIL [Concomitant]
     Active Substance: FISH OIL
     Dates: start: 2016
  44. FELODIPINE. [Concomitant]
     Active Substance: FELODIPINE
     Dates: start: 2017
  45. FELODIPINE. [Concomitant]
     Active Substance: FELODIPINE
     Dates: start: 2020
  46. ADCAL D3 [Concomitant]
     Active Substance: CALCIUM CARBONATE\CHOLECALCIFEROL
     Dates: start: 2012
  47. ADCAL D3 [Concomitant]
     Active Substance: CALCIUM CARBONATE\CHOLECALCIFEROL
     Dosage: 1500MG/400IU
     Dates: start: 2013
  48. ADCAL D3 [Concomitant]
     Active Substance: CALCIUM CARBONATE\CHOLECALCIFEROL
     Dates: start: 2019
  49. IBUPROFEN. [Concomitant]
     Active Substance: IBUPROFEN
     Dosage: PRN
     Dates: start: 2020
  50. VITAMIN C [Concomitant]
     Active Substance: ASCORBIC ACID
     Dates: start: 2014
  51. GLUCOSAMINE WITH CHONDROITIN [Concomitant]
     Dates: start: 2014
  52. LORATADINE. [Concomitant]
     Active Substance: LORATADINE
     Dates: start: 2015

REACTIONS (3)
  - Cataract [Not Recovered/Not Resolved]
  - Amino acid level increased [Not Recovered/Not Resolved]
  - Lenticular opacities [Not Recovered/Not Resolved]

NARRATIVE: CASE EVENT DATE: 2013
